FAERS Safety Report 15782844 (Version 1)
Quarter: 2019Q1

REPORT INFORMATION
  Report Type: Report from Study
  Country: EG (occurrence: EG)
  Receive Date: 20190102
  Receipt Date: 20190102
  Transmission Date: 20190417
  Serious: Yes (Hospitalization)
  Sender: FDA-Public Use
  Company Number: EG-SA-2018SA209393

PATIENT
  Age: 9 Year
  Sex: Female

DRUGS (3)
  1. INSULIN GLARGINE [Suspect]
     Active Substance: INSULIN GLARGINE
     Indication: TYPE 1 DIABETES MELLITUS
     Dosage: 8 IU, QD
     Route: 058
     Dates: start: 2015
  2. INSULIN GLULISINE [Suspect]
     Active Substance: INSULIN GLULISINE
     Indication: TYPE 1 DIABETES MELLITUS
     Dosage: ACCORDING TO MEAL (7 IU TO 11 IU), TID
     Route: 058
     Dates: start: 2015, end: 201804
  3. INSULIN GLULISINE [Suspect]
     Active Substance: INSULIN GLULISINE
     Dosage: 8 IU, QD
     Route: 058
     Dates: start: 201807

REACTIONS (5)
  - Diabetic ketoacidosis [Recovered/Resolved]
  - Inflammation [Recovered/Resolved]
  - Hyperglycaemia [Recovered/Resolved]
  - Skin ulcer [Recovered/Resolved]
  - Wound secretion [Recovered/Resolved]

NARRATIVE: CASE EVENT DATE: 201803
